FAERS Safety Report 9032512 (Version 1)
Quarter: 2013Q1

REPORT INFORMATION
  Report Type: Spontaneous
  Country: DE (occurrence: DE)
  Receive Date: 20130125
  Receipt Date: 20130125
  Transmission Date: 20140127
  Serious: Yes (Life-Threatening)
  Sender: FDA-Public Use
  Company Number: DE-TEVA-380366GER

PATIENT
  Age: 44 Year
  Sex: Female
  Weight: 67 kg

DRUGS (1)
  1. MINOCYCLINE-RATIOPHARM 100 [Suspect]
     Indication: ABSCESS
     Route: 048
     Dates: start: 20100714, end: 20100718

REACTIONS (1)
  - Hypoglycaemia [Recovered/Resolved]
